FAERS Safety Report 5609202-X (Version None)
Quarter: 2008Q1

REPORT INFORMATION
  Report Type: 
  Country: None (occurrence: None)
  Receive Date: 20080130
  Receipt Date: 20080130
  Transmission Date: 20080703
  Serious: Yes (Hospitalization)
  Sender: FDA-Public Use
  Company Number: None

PATIENT
  Sex: Female
  Weight: 96.1626 kg

DRUGS (3)
  1. TORADOL [Suspect]
     Indication: BACK PAIN
     Dosage: 60MG ONE TIME IM
     Route: 030
  2. GABAPENTIN [Concomitant]
  3. INSULIN SQ [Concomitant]

REACTIONS (2)
  - INJECTION SITE REACTION [None]
  - PYOMYOSITIS [None]
